FAERS Safety Report 5058287-0 (Version None)
Quarter: 2006Q2

REPORT INFORMATION
  Report Type: 
  Country: None (occurrence: None)
  Receive Date: 20060627
  Receipt Date: 20051205
  Transmission Date: 20061013
  Serious: Yes (Death)
  Sender: FDA-Public Use
  Company Number: 427478

PATIENT
  Age: 59 Year
  Sex: Female
  Weight: 44 kg

DRUGS (5)
  1. XELODA [Suspect]
     Indication: BREAST CANCER METASTATIC
     Dosage: 1000 MG 2 PER DAY ORAL
     Route: 048
     Dates: start: 20051027, end: 20051115
  2. ABRAXANE (PACLITAXEL) [Concomitant]
     Indication: BREAST CANCER METASTATIC
     Dosage: 120 MG 1 PER WEEK INTRAVENOUS
     Route: 042
     Dates: start: 20051026, end: 20051116
  3. CYTOXAN [Concomitant]
  4. ADRIAMYCIN PFS [Concomitant]
  5. TAXOTERE [Concomitant]

REACTIONS (4)
  - BREAST CANCER METASTATIC [None]
  - HEART RATE INCREASED [None]
  - MALAISE [None]
  - PAIN IN EXTREMITY [None]
